FAERS Safety Report 8248770-9 (Version None)
Quarter: 2012Q1

REPORT INFORMATION
  Report Type: 
  Country: None (occurrence: None)
  Receive Date: 20120331
  Receipt Date: 20120326
  Transmission Date: 20120608
  Serious: Yes (Other)
  Sender: FDA-Public Use
  Company Number: PHHY2010US59152

PATIENT
  Sex: Female

DRUGS (3)
  1. CALCIUM CARBONATE [Concomitant]
  2. RECLAST [Suspect]
     Dosage: UNK UKN, UNK
     Route: 042
  3. VITAMIN D [Concomitant]

REACTIONS (6)
  - WRIST FRACTURE [None]
  - GASTROINTESTINAL DISORDER [None]
  - FALL [None]
  - HOT FLUSH [None]
  - FLATULENCE [None]
  - ARTHRALGIA [None]
